FAERS Safety Report 19606640 (Version 2)
Quarter: 2021Q3

REPORT INFORMATION
  Report Type: Report from Study
  Country: TW (occurrence: TW)
  Receive Date: 20210725
  Receipt Date: 20210802
  Transmission Date: 20211014
  Serious: Yes (Hospitalization)
  Sender: FDA-Public Use
  Company Number: NVSC2021TW163105

PATIENT
  Age: 45 Year
  Sex: Female
  Weight: 55 kg

DRUGS (3)
  1. LEE011 [Suspect]
     Active Substance: RIBOCICLIB
     Indication: HER2 NEGATIVE BREAST CANCER
     Dosage: 400 MG, QD, DAY1?21
     Route: 048
     Dates: start: 20200312
  2. LETROZOLE. [Suspect]
     Active Substance: LETROZOLE
     Indication: HER2 NEGATIVE BREAST CANCER
     Dosage: 2.5 MG, QD
     Route: 048
     Dates: start: 20200312
  3. ZANIDIP [Concomitant]
     Active Substance: LERCANIDIPINE HYDROCHLORIDE
     Indication: PRODUCT USED FOR UNKNOWN INDICATION
     Dosage: 1.5 DF, QD
     Route: 048

REACTIONS (1)
  - Pneumonia viral [Not Recovered/Not Resolved]

NARRATIVE: CASE EVENT DATE: 20210719
